FAERS Safety Report 6253563-8 (Version None)
Quarter: 2009Q3

REPORT INFORMATION
  Report Type: 
  Country: None (occurrence: None)
  Receive Date: 20090701
  Receipt Date: 20090618
  Transmission Date: 20100115
  Serious: Yes (Other)
  Sender: FDA-Public Use
  Company Number: US-ELI_LILLY_AND_COMPANY-US200906000853

PATIENT
  Sex: Female
  Weight: 56.689 kg

DRUGS (4)
  1. CYMBALTA [Suspect]
     Indication: MAJOR DEPRESSION
     Dosage: 60 MG, UNK
     Dates: start: 20080804, end: 20080811
  2. CYMBALTA [Suspect]
     Dosage: 60 MG, UNK
     Dates: start: 20080812, end: 20090524
  3. MULTI-VITAMIN [Concomitant]
     Indication: VITAMIN SUPPLEMENTATION
  4. ACETAMINOPHEN [Concomitant]
     Dosage: 1000 MG, 2/W

REACTIONS (2)
  - CHOLELITHIASIS [None]
  - HEPATITIS [None]
